FAERS Safety Report 12249487 (Version 3)
Quarter: 2017Q1

REPORT INFORMATION
  Report Type: Report from Study
  Country: US (occurrence: US)
  Receive Date: 20160408
  Receipt Date: 20170224
  Transmission Date: 20170428
  Serious: Yes (Death, Life-Threatening, Hospitalization)
  Sender: FDA-Public Use
  Company Number: PHEH2016US008063

PATIENT
  Age: 74 Year
  Sex: Male
  Weight: 95.2 kg

DRUGS (1)
  1. ENTRESTO [Suspect]
     Active Substance: SACUBITRIL\VALSARTAN
     Indication: CARDIAC FAILURE
     Dosage: 50 MG, BID
     Route: 048
     Dates: start: 20151230

REACTIONS (6)
  - Arteriosclerosis [Fatal]
  - Bacterial infection [Unknown]
  - Cardiac failure congestive [Fatal]
  - Fall [Fatal]
  - Hypotension [Not Recovered/Not Resolved]
  - Chills [Recovered/Resolved]

NARRATIVE: CASE EVENT DATE: 20160328
